FAERS Safety Report 8189713-6 (Version None)
Quarter: 2012Q1

REPORT INFORMATION
  Report Type: 
  Country: None (occurrence: None)
  Receive Date: 20120221
  Receipt Date: 20120119
  Transmission Date: 20120608
  Serious: No
  Sender: FDA-Public Use
  Company Number: 1000027288

PATIENT
  Age: 62 Year
  Sex: Male

DRUGS (13)
  1. NIACIN [Concomitant]
  2. ADVAIR (SERETIDE) (SERETIDE) [Concomitant]
  3. VENTOLIN (ALBUTEROL) (ALBUTEROL) [Concomitant]
  4. ASPIRIN [Concomitant]
  5. NIFEDICAL (NIFEDIPINE) (NIFEDIPINE) [Concomitant]
  6. CRESTOR (ROSUVASTATIN SODIUM) (ROSUVASTATIN SODIUM) [Concomitant]
  7. VIIBRYD [Suspect]
     Indication: DEPRESSION
     Dosage: 40 MG (40 MG,1 IN 1 D),ORAL
     Route: 048
     Dates: start: 20120101, end: 20120116
  8. DIOVAN [Concomitant]
  9. SINGULAIR (MONTELUKAST SODIUM) (MONTELUKAST SODIUM) [Concomitant]
  10. TORSEMIDE (TORASEMIDE) (TORASEMIDE) [Concomitant]
  11. VIIBRYD [Suspect]
     Indication: DEPRESSION
     Dosage: 10 MG (10 MG,1 IN 1 D),ORAL ; 20 MG (20 MG,1 IN 1 D),ORAL
     Dates: start: 20120101, end: 20120101
  12. VIIBRYD [Suspect]
     Indication: DEPRESSION
     Dosage: 10 MG (10 MG,1 IN 1 D),ORAL ; 20 MG (20 MG,1 IN 1 D),ORAL
     Dates: start: 20120101, end: 20120101
  13. TOPROL (METOPROLOL SUCCINATE) (METOPROLOL SUCCINATE) [Concomitant]

REACTIONS (4)
  - UNEVALUABLE EVENT [None]
  - INSOMNIA [None]
  - HALLUCINATION, AUDITORY [None]
  - ANGER [None]
